FAERS Safety Report 6796038-X (Version None)
Quarter: 2010Q2

REPORT INFORMATION
  Report Type: 
  Country: None (occurrence: None)
  Receive Date: 20100625
  Receipt Date: 20100618
  Transmission Date: 20101027
  Serious: Yes (Other)
  Sender: FDA-Public Use
  Company Number: US-AMGEN-QUU419205

PATIENT
  Sex: Female

DRUGS (5)
  1. NEUPOGEN [Suspect]
     Indication: DRUG USE FOR UNKNOWN INDICATION
  2. PROCRIT [Suspect]
     Indication: DRUG USE FOR UNKNOWN INDICATION
     Dates: start: 20100301
  3. PEG-INTRON [Suspect]
     Route: 058
     Dates: start: 20060101, end: 20100501
  4. COPEGUS [Suspect]
     Route: 048
     Dates: start: 20060101, end: 20100501
  5. TRAMADOL HCL [Concomitant]

REACTIONS (6)
  - ANAEMIA [None]
  - BONE PAIN [None]
  - DRUG INEFFECTIVE [None]
  - ORAL HERPES [None]
  - RASH [None]
  - WHITE BLOOD CELL COUNT DECREASED [None]
